FAERS Safety Report 21293332 (Version 1)
Quarter: 2022Q3

REPORT INFORMATION
  Report Type: Spontaneous
  Country: FI (occurrence: FI)
  Receive Date: 20220905
  Receipt Date: 20220905
  Transmission Date: 20221026
  Serious: Yes (Other)
  Sender: FDA-Public Use
  Company Number: FI-SUN PHARMACEUTICAL INDUSTRIES LTD-2022R1-353256

PATIENT
  Age: 32 Year
  Sex: Female

DRUGS (10)
  1. BACLOFEN [Suspect]
     Active Substance: BACLOFEN
     Indication: Product used for unknown indication
     Route: 065
  2. CEPHALEXIN [Suspect]
     Active Substance: CEPHALEXIN
     Indication: Urinary tract infection
     Dosage: UNK
     Route: 065
  3. IRON SUCROSE [Suspect]
     Active Substance: IRON SUCROSE
     Indication: Serum ferritin decreased
     Dosage: 800 MILLIGRAM
     Route: 042
  4. TIZANIDINE [Suspect]
     Active Substance: TIZANIDINE
     Indication: Product used for unknown indication
     Route: 065
  5. TOLTERODINE [Suspect]
     Active Substance: TOLTERODINE
     Indication: Product used for unknown indication
     Route: 065
  6. BETAMETHASONE [Suspect]
     Active Substance: BETAMETHASONE
     Indication: Lung disorder
     Dosage: 12 MILLIGRAM
     Route: 030
  7. DALTEPARIN [Suspect]
     Active Substance: DALTEPARIN
     Indication: Prophylaxis
     Dosage: 2500 INTERNATIONAL UNIT 1 X 1
     Route: 065
  8. METHENAMINE [Suspect]
     Active Substance: METHENAMINE
     Indication: Urinary tract infection
     Dosage: UNK
     Route: 065
  9. AMDINOCILLIN PIVOXIL [Suspect]
     Active Substance: AMDINOCILLIN PIVOXIL
     Indication: Urinary tract infection
     Dosage: UNK
     Route: 065
  10. THYROXINE [Suspect]
     Active Substance: LEVOTHYROXINE
     Indication: Product used for unknown indication
     Route: 065

REACTIONS (7)
  - Exposure during pregnancy [Unknown]
  - Urinary tract infection [Unknown]
  - Haemoglobin decreased [Unknown]
  - Premature delivery [Unknown]
  - Serum ferritin decreased [Unknown]
  - Dyspnoea [Unknown]
  - Fatigue [Unknown]
